FAERS Safety Report 10264896 (Version 2)
Quarter: 2014Q3

REPORT INFORMATION
  Report Type: Spontaneous
  Country: DE (occurrence: None)
  Receive Date: 20140624
  Receipt Date: 20140730
  Transmission Date: 20150326
  Serious: Yes (Other)
  Sender: FDA-Public Use
  Company Number: NGX_02449_2014

PATIENT
  Age: 48 Year
  Sex: Female
  Weight: 70 kg

DRUGS (1)
  1. QUTENZA [Suspect]
     Active Substance: CAPSAICIN
     Indication: RADICULOPATHY
     Dosage: PATCH
     Route: 062
     Dates: start: 20140522, end: 20140522

REACTIONS (2)
  - Application site pain [None]
  - Application site pustules [None]

NARRATIVE: CASE EVENT DATE: 2014
